FAERS Safety Report 7369602-7 (Version None)
Quarter: 2011Q1

REPORT INFORMATION
  Report Type: 
  Country: None (occurrence: None)
  Receive Date: 20110323
  Receipt Date: 20110315
  Transmission Date: 20110831
  Serious: Yes (Other)
  Sender: FDA-Public Use
  Company Number: US-AMGEN-USASP2011011464

PATIENT
  Age: 2 Year
  Sex: Male

DRUGS (5)
  1. PROCRIT [Suspect]
     Indication: NEPHROGENIC ANAEMIA
     Dosage: UNK
  2. PROCRIT [Suspect]
     Dosage: 300 IU, 2 TIMES/WK
     Dates: start: 20080702
  3. WHOLE BLOOD [Concomitant]
  4. IRON [Concomitant]
     Route: 042
  5. PROCRIT [Suspect]
     Dosage: 400 IU, 2 TIMES/WK
     Route: 058

REACTIONS (8)
  - THERAPEUTIC RESPONSE DECREASED [None]
  - HYPERPARATHYROIDISM [None]
  - IRON DEFICIENCY [None]
  - RENAL FAILURE [None]
  - TRANSFUSION [None]
  - BLOOD TEST ABNORMAL [None]
  - NEUTROPENIA [None]
  - MARROW HYPERPLASIA [None]
